FAERS Safety Report 9408991 (Version 1)
Quarter: 2013Q1

REPORT INFORMATION
  Report Type: Spontaneous
  Country: JP (occurrence: None)
  Receive Date: 20130315
  Receipt Date: 20130315
  Transmission Date: 20140127
  Serious: Yes (Other)
  Sender: FDA-Public Use
  Company Number: SYM-2013-01638

PATIENT
  Age: 72 Year
  Sex: Female

DRUGS (1)
  1. HERBESSER R (DILTIAZEM HYDROCHLORIDE) (CAPSULE) (DILTIAZEM HYDROCHLORIDE) [Suspect]
     Indication: PRODUCT USED FOR UNKNOWN INDICATION
     Route: 048
     Dates: start: 200805, end: 201006

REACTIONS (2)
  - Sinus bradycardia [None]
  - Sinus arrest [None]
